FAERS Safety Report 6823562-3 (Version None)
Quarter: 2010Q3

REPORT INFORMATION
  Report Type: 
  Country: None (occurrence: None)
  Receive Date: 20100708
  Receipt Date: 20060720
  Transmission Date: 20110219
  Serious: No
  Sender: FDA-Public Use
  Company Number: US-PFIZER INC-2006091771

PATIENT
  Sex: Male
  Weight: 92.99 kg

DRUGS (3)
  1. CHANTIX [Suspect]
     Indication: SMOKING CESSATION THERAPY
     Route: 048
     Dates: start: 20060717
  2. HYDROCODONE BITARTRATE [Concomitant]
     Route: 065
  3. ACETYLSALICYLIC ACID [Concomitant]
     Route: 065

REACTIONS (3)
  - ASTHENIA [None]
  - FEELING ABNORMAL [None]
  - VOMITING [None]
